FAERS Safety Report 25295841 (Version 3)
Quarter: 2025Q2

REPORT INFORMATION
  Report Type: Spontaneous
  Country: US (occurrence: US)
  Receive Date: 20250511
  Receipt Date: 20250628
  Transmission Date: 20250717
  Serious: No
  Sender: SANOFI AVENTIS
  Company Number: US-SANOFI-02509951

PATIENT
  Age: 47 Year
  Sex: Male

DRUGS (1)
  1. DUPIXENT [Suspect]
     Active Substance: DUPILUMAB
     Indication: Nasal polyps
     Dosage: 300 MG, BIM
     Route: 058

REACTIONS (6)
  - Haemorrhage [Unknown]
  - Injection site reaction [Unknown]
  - Skin discolouration [Unknown]
  - Swelling [Unknown]
  - Contusion [Unknown]
  - Extravasation [Unknown]

NARRATIVE: CASE EVENT DATE: 20250504
